FAERS Safety Report 23267498 (Version 2)
Quarter: 2023Q4

REPORT INFORMATION
  Report Type: Spontaneous
  Country: DE (occurrence: DE)
  Receive Date: 20231206
  Receipt Date: 20231214
  Transmission Date: 20240109
  Serious: Yes (Death, Other)
  Sender: FDA-Public Use
  Company Number: DE-drreddys-LIT/GER/23/0187161

PATIENT
  Age: 8 Year
  Sex: Male

DRUGS (10)
  1. SIROLIMUS [Suspect]
     Active Substance: SIROLIMUS
     Indication: Alveolar rhabdomyosarcoma
     Dates: start: 202204, end: 202210
  2. DASATINIB [Suspect]
     Active Substance: DASATINIB
     Indication: Alveolar rhabdomyosarcoma
     Dates: start: 202204, end: 202210
  3. DASATINIB [Suspect]
     Active Substance: DASATINIB
     Dosage: UNK
     Dates: start: 202204, end: 202210
  4. DASATINIB [Suspect]
     Active Substance: DASATINIB
     Dates: start: 202204, end: 202210
  5. VINORELBINE [Suspect]
     Active Substance: VINORELBINE TARTRATE
     Indication: Alveolar rhabdomyosarcoma
  6. VINORELBINE [Suspect]
     Active Substance: VINORELBINE TARTRATE
     Dosage: UNK
     Dates: start: 202204, end: 202210
  7. VINORELBINE [Suspect]
     Active Substance: VINORELBINE TARTRATE
     Dosage: UNK
     Dates: start: 202204, end: 202210
  8. TEMOZOLOMIDE [Suspect]
     Active Substance: TEMOZOLOMIDE
     Indication: Alveolar rhabdomyosarcoma
     Dates: start: 202204, end: 202210
  9. IRINOTECAN [Suspect]
     Active Substance: IRINOTECAN
     Indication: Alveolar rhabdomyosarcoma
     Dates: start: 202204, end: 202210
  10. CYCLOPHOSPHAMIDE [Suspect]
     Active Substance: CYCLOPHOSPHAMIDE
     Indication: Alveolar rhabdomyosarcoma

REACTIONS (6)
  - Drug ineffective for unapproved indication [Fatal]
  - Off label use [Fatal]
  - Metastases to central nervous system [Fatal]
  - Disease progression [Fatal]
  - Epilepsy [Unknown]
  - Anxiety [Unknown]

NARRATIVE: CASE EVENT DATE: 20220101
